FAERS Safety Report 10249690 (Version 4)
Quarter: 2014Q3

REPORT INFORMATION
  Report Type: Spontaneous
  Country: IT (occurrence: IT)
  Receive Date: 20140620
  Receipt Date: 20140909
  Transmission Date: 20150326
  Serious: Yes (Life-Threatening, Other)
  Sender: FDA-Public Use
  Company Number: IT-BAXTER-2014BAX031017

PATIENT
  Age: 66 Year
  Sex: Female

DRUGS (10)
  1. DISUFEN [Suspect]
     Active Substance: SUFENTANIL CITRATE
     Indication: EPIDURAL ANALGESIA
     Route: 065
     Dates: start: 20140530
  2. UNASYN [Suspect]
     Active Substance: AMPICILLIN SODIUM\SULBACTAM SODIUM
     Indication: PRODUCT USED FOR UNKNOWN INDICATION
     Route: 042
     Dates: start: 20140530
  3. MIDAZOLAM [Suspect]
     Active Substance: MIDAZOLAM\MIDAZOLAM HYDROCHLORIDE
     Indication: GENERAL ANAESTHESIA
     Route: 042
     Dates: start: 20140530
  4. MIDAZOLAM [Suspect]
     Active Substance: MIDAZOLAM\MIDAZOLAM HYDROCHLORIDE
     Route: 042
     Dates: start: 20140530
  5. SUPRANE [Suspect]
     Active Substance: DESFLURANE
     Indication: PRODUCT USED FOR UNKNOWN INDICATION
     Route: 065
  6. ROCURONIO BROMURO [Suspect]
     Active Substance: ROCURONIUM BROMIDE
     Indication: GENERAL ANAESTHESIA
     Route: 042
     Dates: start: 20140530
  7. RANITIDINE [Suspect]
     Active Substance: RANITIDINE\RANITIDINE HYDROCHLORIDE
     Indication: PRODUCT USED FOR UNKNOWN INDICATION
     Route: 042
     Dates: start: 20140530
  8. DIPRIVAN [Suspect]
     Active Substance: PROPOFOL
     Indication: GENERAL ANAESTHESIA
     Route: 042
     Dates: start: 20140530
  9. FENTANEST [Suspect]
     Active Substance: FENTANYL CITRATE
     Indication: GENERAL ANAESTHESIA
     Route: 042
     Dates: start: 20140530
  10. ROPIVACAINA [Suspect]
     Active Substance: ROPIVACAINE HYDROCHLORIDE
     Indication: EPIDURAL ANALGESIA
     Route: 065

REACTIONS (1)
  - Angioedema [Recovered/Resolved]

NARRATIVE: CASE EVENT DATE: 20140530
